FAERS Safety Report 6461986-7 (Version None)
Quarter: 2009Q4

REPORT INFORMATION
  Report Type: 
  Country: None (occurrence: None)
  Receive Date: 20091130
  Receipt Date: 20091123
  Transmission Date: 20100525
  Serious: Yes (Death, Hospitalization)
  Sender: FDA-Public Use
  Company Number: US-ROXANE LABORATORIES, INC.-2009-RO-01188RO

PATIENT
  Age: 64 Year
  Sex: Female

DRUGS (12)
  1. MYCOPHENOLATE MOFETIL [Suspect]
     Indication: IMMUNOSUPPRESSION
  2. PIPERACILLIN AND TAZOBACTAM [Suspect]
     Indication: ANTIBIOTIC THERAPY
  3. TACROLIMUS [Suspect]
     Indication: IMMUNOSUPPRESSION
  4. CORTICOSTEROIDS [Suspect]
     Indication: IMMUNOSUPPRESSION
  5. ANTI-THYMOCYTE GLOBULIN NOS [Suspect]
     Indication: TRANSPLANT REJECTION
  6. LINEZOLID [Suspect]
     Indication: ANTIBIOTIC THERAPY
  7. CEFEPIME [Suspect]
     Indication: ANTIBIOTIC THERAPY
  8. METRONIDAZOLE [Suspect]
     Indication: ANTIBIOTIC THERAPY
  9. GANCICLOVIR [Suspect]
     Indication: ANTIBIOTIC THERAPY
  10. TRIMETHOPRIM + SULFAMETHOXAZOLE [Suspect]
     Indication: PROPHYLAXIS
  11. MEROPENEM [Suspect]
     Indication: KLEBSIELLA INFECTION
  12. COLISTIN [Suspect]
     Indication: KLEBSIELLA INFECTION

REACTIONS (13)
  - CLOSTRIDIUM DIFFICILE COLITIS [None]
  - CYTOMEGALOVIRUS VIRAEMIA [None]
  - ENTEROCOCCAL BACTERAEMIA [None]
  - GASTROINTESTINAL HAEMORRHAGE [None]
  - HAEMODYNAMIC INSTABILITY [None]
  - HYPOTENSION [None]
  - KLEBSIELLA INFECTION [None]
  - PULMONARY EMBOLISM [None]
  - PYREXIA [None]
  - RENAL FAILURE ACUTE [None]
  - RESPIRATORY FAILURE [None]
  - SEPTIC SHOCK [None]
  - TRANSPLANT REJECTION [None]
